FAERS Safety Report 5136102-4 (Version None)
Quarter: 2006Q4

REPORT INFORMATION
  Report Type: 
  Country: None (occurrence: None)
  Receive Date: 20061027
  Receipt Date: 20061018
  Transmission Date: 20070319
  Serious: Yes (Death, Hospitalization, Other)
  Sender: FDA-Public Use
  Company Number: US-JNJFOC-20060903874

PATIENT
  Sex: Male

DRUGS (5)
  1. REMICADE [Suspect]
     Route: 042
  2. REMICADE [Suspect]
     Route: 042
  3. REMICADE [Suspect]
     Indication: COLITIS ULCERATIVE
     Route: 042
  4. VANCOMYCIN [Concomitant]
  5. TPN [Concomitant]

REACTIONS (4)
  - INTERVERTEBRAL DISCITIS [None]
  - OSTEOMYELITIS [None]
  - PULMONARY EMBOLISM [None]
  - STAPHYLOCOCCAL BACTERAEMIA [None]
